FAERS Safety Report 18111083 (Version 1)
Quarter: 2020Q3

REPORT INFORMATION
  Report Type: Spontaneous
  Country: JP (occurrence: JP)
  Receive Date: 20200805
  Receipt Date: 20200805
  Transmission Date: 20201103
  Serious: Yes (Other)
  Sender: FDA-Public Use
  Company Number: JP-INGENUS PHARMACEUTICALS, LLC-2020INF000129

PATIENT
  Age: 64 Year
  Sex: Male

DRUGS (4)
  1. TRASTUZUMAB. [Concomitant]
     Active Substance: TRASTUZUMAB
     Indication: METASTATIC GASTRIC CANCER
     Dosage: 8 MILLIGRAM/KILOGRAM, INITIAL DOSE
     Route: 065
  2. OXALIPLATIN. [Suspect]
     Active Substance: OXALIPLATIN
     Indication: METASTATIC GASTRIC CANCER
     Dosage: 130 MILLIGRAM/SQ. METER, EVERY 21 DAYS
     Route: 065
  3. TRASTUZUMAB. [Concomitant]
     Active Substance: TRASTUZUMAB
     Dosage: 6 MILLIGRAM/KILOGRAM, EVERY 21 DAYS THEREAFTER
     Route: 065
  4. CAPECITABINE. [Concomitant]
     Active Substance: CAPECITABINE
     Indication: METASTATIC GASTRIC CANCER
     Dosage: 2000 MILLIGRAM/SQ. METER, FOR 14 DAYS FOLLOWED BY 7 DAYS OF REST
     Route: 065

REACTIONS (2)
  - Lhermitte^s sign [Recovered/Resolved]
  - Neuropathy peripheral [Not Recovered/Not Resolved]
